FAERS Safety Report 5202404-6 (Version None)
Quarter: 2006Q4

REPORT INFORMATION
  Report Type: 
  Country: None (occurrence: None)
  Receive Date: 20061012
  Receipt Date: 20060822
  Transmission Date: 20070319
  Serious: No
  Sender: FDA-Public Use
  Company Number: 2006S1000164

PATIENT
  Age: 25 Year
  Sex: Male
  Weight: 81.8 kg

DRUGS (4)
  1. CUBICIN [Suspect]
     Indication: CELLULITIS
     Dosage: 500 MG;Q24H;IV
     Route: 042
     Dates: start: 20060805, end: 20060815
  2. CUBICIN [Suspect]
     Indication: STAPHYLOCOCCAL INFECTION
     Dosage: 500 MG;Q24H;IV
     Route: 042
     Dates: start: 20060805, end: 20060815
  3. LISINOPRIL [Concomitant]
  4. VICODIN [Concomitant]

REACTIONS (4)
  - BLOOD CREATINE PHOSPHOKINASE INCREASED [None]
  - DRUG SCREEN POSITIVE [None]
  - MYALGIA [None]
  - PAIN IN EXTREMITY [None]
